FAERS Safety Report 4559091-X (Version None)
Quarter: 2005Q1

REPORT INFORMATION
  Report Type: 
  Country: None (occurrence: None)
  Receive Date: 20050124
  Receipt Date: 20050114
  Transmission Date: 20050727
  Serious: Yes (Congenital Anomaly, Other)
  Sender: FDA-Public Use
  Company Number: 200510437GDDC

PATIENT
  Sex: Male

DRUGS (8)
  1. LASIX [Suspect]
     Dosage: DOSE: UNK
     Route: 064
  2. SPIRONOLACTONE [Suspect]
     Dosage: DOSE: UNK
     Route: 064
  3. DEXAMETHASONE [Suspect]
     Dosage: DOSE: UNK
     Route: 064
  4. POTASSIUM CHLORIDE [Suspect]
     Dosage: DOSE: UNK
     Route: 064
  5. ACETAMINOPHEN [Suspect]
     Dosage: DOSE: UNK
     Route: 064
  6. ACETYLSALICYLIC ACID SRT [Suspect]
     Dosage: DOSE: UNK
     Route: 064
  7. FERROGRAD C [Suspect]
     Dosage: DOSE: UNK
     Route: 064
  8. PENICILLAMINE [Suspect]
     Dosage: DOSE: UNK
     Route: 064

REACTIONS (1)
  - ADRENOGENITAL SYNDROME [None]
